FAERS Safety Report 5715913-8 (Version None)
Quarter: 2008Q2

REPORT INFORMATION
  Report Type: 
  Country: None (occurrence: None)
  Receive Date: 20080424
  Receipt Date: 20080411
  Transmission Date: 20081010
  Serious: Yes (Other)
  Sender: FDA-Public Use
  Company Number: US-BAYER-200819755NA

PATIENT
  Age: 46 Year
  Sex: Male

DRUGS (1)
  1. AVELOX [Suspect]
     Indication: SINUSITIS
     Dosage: TOTAL DAILY DOSE: 400 MG  UNIT DOSE: 400 MG
     Route: 048
     Dates: start: 20080323, end: 20080401

REACTIONS (4)
  - BLOOD BILIRUBIN INCREASED [None]
  - HEPATITIS [None]
  - INFLUENZA LIKE ILLNESS [None]
  - JAUNDICE [None]
